FAERS Safety Report 21623353 (Version 1)
Quarter: 2022Q4

REPORT INFORMATION
  Report Type: Spontaneous
  Country: CN (occurrence: CN)
  Receive Date: 20221121
  Receipt Date: 20221121
  Transmission Date: 20230113
  Serious: Yes (Hospitalization, Other)
  Sender: FDA-Public Use
  Company Number: CN-OTSUKA-2022_052290

PATIENT
  Age: 15 Year
  Sex: Female
  Weight: 61 kg

DRUGS (1)
  1. ARIPIPRAZOLE [Suspect]
     Active Substance: ARIPIPRAZOLE
     Indication: Mental disorder
     Dosage: 10 MG, QD
     Route: 048
     Dates: start: 20221026, end: 20221103

REACTIONS (4)
  - Loss of consciousness [Recovering/Resolving]
  - Hypertonia [Recovering/Resolving]
  - Seizure [Recovering/Resolving]
  - Product use in unapproved indication [Unknown]

NARRATIVE: CASE EVENT DATE: 20221026
